FAERS Safety Report 5354612-1 (Version None)
Quarter: 2007Q2

REPORT INFORMATION
  Report Type: 
  Country: None (occurrence: None)
  Receive Date: 20070612
  Receipt Date: 20070604
  Transmission Date: 20071010
  Serious: Yes (Hospitalization, Other)
  Sender: FDA-Public Use
  Company Number: FR-GENENTECH-240746

PATIENT
  Age: 62 Year
  Sex: Female

DRUGS (3)
  1. RAPTIVA [Suspect]
     Indication: PSORIASIS
     Dosage: 53 MG, 1/WEEK
     Route: 058
     Dates: start: 20061115
  2. BROMOCRIPTINE MESYLATE [Concomitant]
     Indication: PARKINSON'S DISEASE
  3. MADOPAR [Concomitant]
     Indication: PARKINSON'S DISEASE

REACTIONS (4)
  - INFLUENZA [None]
  - KERATITIS HERPETIC [None]
  - MENINGITIS ASEPTIC [None]
  - PSORIASIS [None]
